FAERS Safety Report 5011041-8 (Version None)
Quarter: 2006Q2

REPORT INFORMATION
  Report Type: 
  Country: None (occurrence: None)
  Receive Date: 20060525
  Receipt Date: 20040317
  Transmission Date: 20061013
  Serious: No
  Sender: FDA-Public Use
  Company Number: US-BRISTOL-MYERS SQUIBB COMPANY-12539698

PATIENT
  Sex: Female

DRUGS (1)
  1. CORGARD [Suspect]
     Route: 048

REACTIONS (2)
  - ALOPECIA [None]
  - ONYCHOCLASIS [None]
